FAERS Safety Report 17541241 (Version 2)
Quarter: 2020Q1

REPORT INFORMATION
  Report Type: Spontaneous
  Country: AU (occurrence: AU)
  Receive Date: 20200313
  Receipt Date: 20200330
  Transmission Date: 20200409
  Serious: Yes (Disabling)
  Sender: FDA-Public Use
  Company Number: AU-ASTRAZENECA-2020SE27585

PATIENT
  Sex: Female

DRUGS (7)
  1. PULMICORT TURBUHALER [Suspect]
     Active Substance: BUDESONIDE
     Indication: ASTHMA
     Dosage: 200 MCG, 1-2 DOSES, TWO TIMES A DAY
     Route: 055
     Dates: start: 201903, end: 202001
  2. PULMICORT TURBUHALER [Suspect]
     Active Substance: BUDESONIDE
     Indication: ASTHMA
     Dosage: 200 MCG, 1-2 DOSES, TWO TIMES A DAY
     Route: 055
  3. RITALIN [Concomitant]
     Active Substance: METHYLPHENIDATE HYDROCHLORIDE
     Route: 048
     Dates: start: 201908
  4. RISPERIDONE. [Concomitant]
     Active Substance: RISPERIDONE
     Dates: start: 201905
  5. VENLAFAXINE [Concomitant]
     Active Substance: VENLAFAXINE HYDROCHLORIDE
     Route: 048
     Dates: start: 201901
  6. MIRTAZAPINE. [Concomitant]
     Active Substance: MIRTAZAPINE
     Dosage: 1 DOSE AT NIGHT
     Route: 048
     Dates: start: 201903
  7. CLONIDINE. [Concomitant]
     Active Substance: CLONIDINE
     Dosage: 1 DOSE AT NIGHT
     Route: 048
     Dates: start: 201809

REACTIONS (3)
  - Incorrect dose administered by device [Unknown]
  - Asthma [Recovered/Resolved]
  - Device malfunction [Unknown]

NARRATIVE: CASE EVENT DATE: 20200117
